FAERS Safety Report 4376603-X (Version None)
Quarter: 2004Q2

REPORT INFORMATION
  Report Type: 
  Country: None (occurrence: None)
  Receive Date: 20040608
  Receipt Date: 20040528
  Transmission Date: 20050107
  Serious: Yes (Hospitalization)
  Sender: FDA-Public Use
  Company Number: 206861

PATIENT
  Age: 40 Year
  Sex: Female
  Weight: 63.5 kg

DRUGS (4)
  1. XOLAIR [Suspect]
     Indication: ASTHMA
     Dosage: 150 MG, SINGLE, SUBCUTANEOUS
     Route: 058
     Dates: start: 20040527, end: 20040527
  2. PREDNISONE TAB [Concomitant]
  3. NEXIUM [Concomitant]
  4. FORADIL [Concomitant]

REACTIONS (5)
  - BLOOD PRESSURE DECREASED [None]
  - HEART RATE DECREASED [None]
  - HYPERHIDROSIS [None]
  - LOSS OF CONSCIOUSNESS [None]
  - SYNCOPE VASOVAGAL [None]
